APPROVED DRUG PRODUCT: ACETAMINOPHEN AND CODEINE PHOSPHATE
Active Ingredient: ACETAMINOPHEN; CODEINE PHOSPHATE
Strength: 120MG/5ML;12MG/5ML
Dosage Form/Route: SOLUTION;ORAL
Application: A091238 | Product #001
Applicant: CHARTWELL MOLECULAR HOLDINGS LLC
Approved: Nov 10, 2011 | RLD: No | RS: No | Type: DISCN